FAERS Safety Report 16704523 (Version 1)
Quarter: 2019Q3

REPORT INFORMATION
  Report Type: Spontaneous
  Country: DE (occurrence: DE)
  Receive Date: 20190814
  Receipt Date: 20190814
  Transmission Date: 20191004
  Serious: Yes (Hospitalization, Other)
  Sender: FDA-Public Use
  Company Number: DE-NOVOPROD-677337

PATIENT
  Age: 77 Year
  Sex: Male

DRUGS (12)
  1. HUMAN INSULIN [Suspect]
     Active Substance: INSULIN HUMAN
     Indication: PRODUCT USED FOR UNKNOWN INDICATION
     Dosage: 100 IE/ML, (20-6-14-0)
     Route: 058
  2. IBUPROFEN. [Concomitant]
     Active Substance: IBUPROFEN
     Dosage: 600 MG (ON DEMAND)
     Route: 065
  3. ALLOPURINOL. [Concomitant]
     Active Substance: ALLOPURINOL
     Dosage: 300 MG, (0.5-0-0-0)
     Route: 065
  4. METOPROLOL. [Concomitant]
     Active Substance: METOPROLOL
     Dosage: 50 MG, BID (1-0-1-0)
     Route: 065
  5. PHENPROCOUMON [Concomitant]
     Active Substance: PHENPROCOUMON
     Dosage: 3 MG
     Route: 065
  6. OMEPRAZOL E [Concomitant]
     Active Substance: OMEPRAZOLE
     Dosage: 20 MG, QD (1-0-0-0)
     Route: 065
  7. SITAGLIPTIN [Suspect]
     Active Substance: SITAGLIPTIN
     Indication: PRODUCT USED FOR UNKNOWN INDICATION
     Dosage: 128.48 MG, QD (1-0-0-0)
     Route: 065
  8. URAPIDIL [Concomitant]
     Active Substance: URAPIDIL
     Dosage: 60 MG, TID (1-1-1-0)
     Route: 065
  9. INSULIN GLARGINE [Suspect]
     Active Substance: INSULIN GLARGINE
     Indication: PRODUCT USED FOR UNKNOWN INDICATION
     Dosage: 100 IE/ML, (0-0-0-20)
     Route: 058
  10. FUROSEMIDE. [Concomitant]
     Active Substance: FUROSEMIDE
     Dosage: 125 MG, QD (1-0-0-0)
     Route: 065
  11. AMLODIPINE [Concomitant]
     Active Substance: AMLODIPINE BESYLATE
     Dosage: 12.8 MG, QD (1-0-0-0)
     Route: 065
  12. RAMIPRIL. [Concomitant]
     Active Substance: RAMIPRIL
     Dosage: 5 MG, BID (1-0-1-0)
     Route: 065

REACTIONS (5)
  - Accidental overdose [Unknown]
  - Hypoglycaemia [Unknown]
  - Seizure [Unknown]
  - Hemiparesis [Unknown]
  - Depressed level of consciousness [Unknown]
